FAERS Safety Report 25631157 (Version 3)
Quarter: 2025Q3

REPORT INFORMATION
  Report Type: Spontaneous
  Country: JP (occurrence: JP)
  Receive Date: 20250801
  Receipt Date: 20250814
  Transmission Date: 20251020
  Serious: No
  Sender: CSL BEHRING
  Company Number: JP-BEH-2025214464

PATIENT
  Age: 13 Year
  Sex: Female

DRUGS (25)
  1. BERINERT [Suspect]
     Active Substance: HUMAN C1-ESTERASE INHIBITOR
     Indication: Hereditary angioedema
     Route: 065
  2. BERINERT [Suspect]
     Active Substance: HUMAN C1-ESTERASE INHIBITOR
     Indication: Prophylaxis
  3. BERINERT [Suspect]
     Active Substance: HUMAN C1-ESTERASE INHIBITOR
     Indication: Product used for unknown indication
     Route: 065
  4. BERINERT [Suspect]
     Active Substance: HUMAN C1-ESTERASE INHIBITOR
     Indication: Product used for unknown indication
     Route: 065
  5. SODIUM CHLORIDE [Concomitant]
     Active Substance: SODIUM CHLORIDE
  6. LAMICTAL [Concomitant]
     Active Substance: LAMOTRIGINE
  7. VIMPAT [Concomitant]
     Active Substance: LACOSAMIDE
  8. INDERAL [Concomitant]
     Active Substance: PROPRANOLOL HYDROCHLORIDE
  9. AMINO ACIDS\DEXTROSE\ELECTROLYTES NOS\SOYBEAN OIL\VITAMINS [Concomitant]
     Active Substance: AMINO ACIDS\DEXTROSE\ELECTROLYTES NOS\SOYBEAN OIL\VITAMINS
  10. Solita-t2 [Concomitant]
  11. MYSTAN [Concomitant]
     Active Substance: CLOBAZAM
  12. TOPIRAMATE [Concomitant]
     Active Substance: TOPIRAMATE
  13. TRANEXAMIC ACID [Concomitant]
     Active Substance: TRANEXAMIC ACID
  14. PRANLUKAST [Concomitant]
     Active Substance: PRANLUKAST
  15. EPINASTINE HYDROCHLORIDE [Concomitant]
     Active Substance: EPINASTINE HYDROCHLORIDE
  16. CARBOCYSTEINE [Concomitant]
     Active Substance: CARBOCYSTEINE
  17. FAMOTIDINE [Concomitant]
     Active Substance: FAMOTIDINE
  18. MOSAPRIDE CITRATE [Concomitant]
     Active Substance: MOSAPRIDE CITRATE
  19. MIYA-BM [Concomitant]
     Active Substance: CLOSTRIDIUM BUTYRICUM SPORES STRAIN M-55
  20. Incremin [Concomitant]
  21. DEPAKENE [Concomitant]
     Active Substance: VALPROIC ACID
  22. GLUTAMINE\SODIUM GUALENATE [Concomitant]
     Active Substance: GLUTAMINE\SODIUM GUALENATE
  23. TU-100 [Concomitant]
     Active Substance: ASIAN GINSENG\GINGER\ZANTHOXYLUM PIPERITUM FRUIT PULP
  24. Levocarnitine ff [Concomitant]
  25. POTASSIUM ASPARTATE [Concomitant]
     Active Substance: POTASSIUM ASPARTATE

REACTIONS (1)
  - Pneumonia [Fatal]
